FAERS Safety Report 5192701-5 (Version None)
Quarter: 2006Q4

REPORT INFORMATION
  Report Type: 
  Country: None (occurrence: None)
  Receive Date: 20061228
  Receipt Date: 20061214
  Transmission Date: 20070319
  Serious: Yes (Death, Other)
  Sender: FDA-Public Use
  Company Number: JP-BRISTOL-MYERS SQUIBB COMPANY-13613054

PATIENT
  Age: 64 Year
  Sex: Male

DRUGS (4)
  1. TAXOL [Suspect]
     Indication: GASTRIC CANCER
     Route: 041
     Dates: start: 20040318
  2. BRIPLATIN [Suspect]
     Indication: GASTRIC CANCER
     Route: 033
     Dates: start: 20030929
  3. TS-1 [Suspect]
     Indication: GASTRIC CANCER
     Route: 048
     Dates: start: 20030922
  4. IRINOTECAN HCL [Suspect]
     Indication: GASTRIC CANCER
     Dates: start: 20040910

REACTIONS (2)
  - HYPERKALAEMIA [None]
  - MALIGNANT NEOPLASM PROGRESSION [None]
